FAERS Safety Report 25596921 (Version 1)
Quarter: 2025Q3

REPORT INFORMATION
  Report Type: Spontaneous
  Country: US (occurrence: None)
  Receive Date: 20250722
  Receipt Date: 20250722
  Transmission Date: 20251020
  Serious: Yes (Other)
  Sender: FDA-CTU
  Company Number: None

PATIENT
  Age: 26 Year
  Sex: Female
  Weight: 85.5 kg

DRUGS (1)
  1. CYANOCOBALAMIN\GLYCINE\TIRZEPATIDE [Suspect]
     Active Substance: CYANOCOBALAMIN\GLYCINE\TIRZEPATIDE
     Indication: Weight control
     Dosage: OTHER FREQUENCY : WEEKLY;?
     Route: 030
     Dates: start: 20250318, end: 20250630

REACTIONS (3)
  - Muscle spasms [None]
  - Vomiting [None]
  - Dehydration [None]

NARRATIVE: CASE EVENT DATE: 20250630
